FAERS Safety Report 11570959 (Version 2)
Quarter: 2015Q4

REPORT INFORMATION
  Report Type: Spontaneous
  Country: US (occurrence: US)
  Receive Date: 20150916
  Receipt Date: 20151027
  Transmission Date: 20160304
  Serious: No
  Sender: FDA-Public Use
  Company Number: US-ELI_LILLY_AND_COMPANY-US200909003352

PATIENT
  Sex: Female

DRUGS (2)
  1. ANXIOLYTICS [Concomitant]
     Active Substance: UNSPECIFIED INGREDIENT
  2. FORTEO [Suspect]
     Active Substance: TERIPARATIDE
     Indication: OSTEOPOROSIS
     Dates: start: 2009

REACTIONS (8)
  - Injection site pain [Unknown]
  - Injection site bruising [Unknown]
  - Pain in extremity [Unknown]
  - Injection site erythema [Unknown]
  - Dizziness [Unknown]
  - Back pain [Unknown]
  - Arthralgia [Unknown]
  - Drug interaction [Unknown]

NARRATIVE: CASE EVENT DATE: 2009
